FAERS Safety Report 6989908-0 (Version None)
Quarter: 2010Q3

REPORT INFORMATION
  Report Type: 
  Country: None (occurrence: None)
  Receive Date: 20100916
  Receipt Date: 20100322
  Transmission Date: 20110219
  Serious: Yes (Death, Other)
  Sender: FDA-Public Use
  Company Number: CH-PFIZER INC-2010030047

PATIENT
  Sex: Male
  Weight: 74 kg

DRUGS (5)
  1. LYRICA [Suspect]
     Indication: SCIATICA
     Dosage: 75 MG, 2X/DAY
     Route: 048
     Dates: start: 20080104, end: 20080108
  2. AGOPTON [Concomitant]
     Dosage: 30 MG, 1X/DAY
     Route: 048
  3. PROSCAR [Concomitant]
     Dosage: 5 MG, 1X/DAY
     Route: 048
  4. PRADIF [Concomitant]
     Dosage: 400 MG, 1X/DAY
     Route: 048
  5. OLFEN [Concomitant]
     Dosage: 50 MG, 2X/DAY
     Route: 048

REACTIONS (5)
  - ATAXIA [None]
  - CONFUSIONAL STATE [None]
  - COORDINATION ABNORMAL [None]
  - DEATH [None]
  - MUSCULAR WEAKNESS [None]
